FAERS Safety Report 22181785 (Version 6)
Quarter: 2024Q1

REPORT INFORMATION
  Report Type: Report from Study
  Country: US (occurrence: US)
  Receive Date: 20230406
  Receipt Date: 20240328
  Transmission Date: 20240410
  Serious: Yes (Hospitalization, Other)
  Sender: FDA-Public Use
  Company Number: US-UCBSA-2022047803

PATIENT
  Age: 69 Year
  Sex: Female

DRUGS (3)
  1. CERTOLIZUMAB PEGOL [Suspect]
     Active Substance: CERTOLIZUMAB PEGOL
     Indication: Rheumatoid arthritis
     Dosage: 400 MILLIGRAM, EV 2 WEEKS(QOW)
     Dates: start: 20180818
  2. CERTOLIZUMAB PEGOL [Suspect]
     Active Substance: CERTOLIZUMAB PEGOL
     Dosage: 400 MILLIGRAM, EV 4 WEEKS
     Dates: start: 2023, end: 20240212
  3. EFFEXOR [Concomitant]
     Active Substance: VENLAFAXINE HYDROCHLORIDE
     Indication: Product used for unknown indication
     Dosage: UNK
     Dates: end: 2023

REACTIONS (19)
  - Neck surgery [Recovered/Resolved]
  - Illness [Recovered/Resolved]
  - Cataract [Recovering/Resolving]
  - Cataract operation [Recovering/Resolving]
  - Benign neoplasm [Not Recovered/Not Resolved]
  - Benign tumour excision [Recovered/Resolved]
  - Spinal operation [Recovered/Resolved]
  - Ankle operation [Recovered/Resolved]
  - Ankle fracture [Recovered/Resolved]
  - Restless legs syndrome [Recovering/Resolving]
  - COVID-19 immunisation [Unknown]
  - Malaise [Not Recovered/Not Resolved]
  - Insomnia [Not Recovered/Not Resolved]
  - Pain [Not Recovered/Not Resolved]
  - Mental status changes [Not Recovered/Not Resolved]
  - Oropharyngeal pain [Unknown]
  - Intentional dose omission [Unknown]
  - Product availability issue [Unknown]
  - Therapy interrupted [Unknown]

NARRATIVE: CASE EVENT DATE: 20230201
